FAERS Safety Report 7465180-2 (Version None)
Quarter: 2011Q2

REPORT INFORMATION
  Report Type: 
  Country: None (occurrence: None)
  Receive Date: 20110509
  Receipt Date: 20110504
  Transmission Date: 20111010
  Serious: Yes (Other)
  Sender: FDA-Public Use
  Company Number: HR-PFIZER INC-2011095430

PATIENT
  Age: 64 Year
  Sex: Female

DRUGS (4)
  1. LANZUL [Concomitant]
     Indication: GASTRITIS
     Dosage: 30 MG, 2X/DAY
     Route: 048
     Dates: start: 20080101
  2. RESOCHIN [Concomitant]
     Indication: SJOGREN'S SYNDROME
     Dosage: UNK
     Route: 048
     Dates: start: 20110212
  3. MEDROL [Suspect]
     Dosage: 32 MG, DAILY
     Route: 048
     Dates: start: 20110212, end: 20110328
  4. LACIPIL [Concomitant]
     Indication: HYPERTENSION
     Dosage: 4 MG, 1X/DAY
     Route: 048
     Dates: start: 20050101

REACTIONS (2)
  - VOMITING [None]
  - GASTRITIS [None]
